FAERS Safety Report 4261825-9 (Version None)
Quarter: 2004Q1

REPORT INFORMATION
  Report Type: 
  Country: None (occurrence: None)
  Receive Date: 20040102
  Receipt Date: 20031117
  Transmission Date: 20041129
  Serious: Yes (Hospitalization)
  Sender: FDA-Public Use
  Company Number: 200321673GDDC

PATIENT
  Age: 58 Year
  Sex: Male

DRUGS (8)
  1. DOCETAXEL [Suspect]
     Indication: NON-SMALL CELL LUNG CANCER
     Route: 042
     Dates: start: 20031105, end: 20031105
  2. CISPLATIN [Suspect]
     Indication: NON-SMALL CELL LUNG CANCER
     Route: 042
     Dates: start: 20031105, end: 20031105
  3. POTASSIUM INTRAVENOUS [Concomitant]
     Route: 042
  4. MAGNESIUM SUPPLEMENT [Concomitant]
     Route: 042
  5. KAPANOL [Concomitant]
  6. MORPHINE [Concomitant]
     Route: 048
  7. MAXOLON [Concomitant]
     Route: 042
  8. LOMOTIL [Concomitant]

REACTIONS (7)
  - ANAEMIA [None]
  - BACTERIAL INFECTION [None]
  - CULTURE WOUND POSITIVE [None]
  - ENTEROBACTER INFECTION [None]
  - FEBRILE NEUTROPENIA [None]
  - NECROTISING FASCIITIS [None]
  - THROMBOCYTOPENIA [None]
